FAERS Safety Report 7426805-0 (Version None)
Quarter: 2011Q2

REPORT INFORMATION
  Report Type: 
  Country: None (occurrence: None)
  Receive Date: 20110420
  Receipt Date: 20110412
  Transmission Date: 20111010
  Serious: Yes (Other)
  Sender: FDA-Public Use
  Company Number: PT-MERCK-1104PRT00007

PATIENT
  Age: 7 Year
  Sex: Male

DRUGS (2)
  1. SINGULAIR [Suspect]
     Indication: COUGH
     Route: 048
  2. DESLORATADINE [Suspect]
     Indication: WHEEZING
     Route: 065

REACTIONS (1)
  - PRESYNCOPE [None]
